FAERS Safety Report 23452807 (Version 1)
Quarter: 2024Q1

REPORT INFORMATION
  Report Type: Spontaneous
  Country: US (occurrence: None)
  Receive Date: 20240129
  Receipt Date: 20240129
  Transmission Date: 20240409
  Serious: Yes (Hospitalization)
  Sender: FDA-Public Use
  Company Number: None

PATIENT
  Age: 67 Year
  Sex: Male
  Weight: 76.5 kg

DRUGS (11)
  1. STELARA [Suspect]
     Active Substance: USTEKINUMAB
     Indication: Colitis ulcerative
     Dates: start: 20230117, end: 20240117
  2. Vitamins [Concomitant]
  3. ASCORBIC ACID [Concomitant]
     Active Substance: ASCORBIC ACID
  4. Vitamins D [Concomitant]
  5. Vitamins K [Concomitant]
  6. ZINC [Concomitant]
     Active Substance: PYRITHIONE ZINC\ZINC\ZINC CHLORIDE
  7. SELENIUM [Concomitant]
     Active Substance: SELENIUM
  8. COENZYME Q10 [Concomitant]
     Active Substance: DIETARY SUPPLEMENT\UBIDECARENONE
  9. FISH OIL [Concomitant]
     Active Substance: FISH OIL
  10. beta super prostrate [Concomitant]
  11. SCHIFF MOVE FREE [Concomitant]
     Active Substance: DIETARY SUPPLEMENT

REACTIONS (9)
  - Therapy non-responder [None]
  - Discomfort [None]
  - Pain [None]
  - Abdominal pain [None]
  - Seizure [None]
  - Depressed level of consciousness [None]
  - Confusional state [None]
  - Feeling abnormal [None]
  - Partial seizures [None]

NARRATIVE: CASE EVENT DATE: 20240118
